FAERS Safety Report 19782725 (Version 3)
Quarter: 2023Q4

REPORT INFORMATION
  Report Type: Spontaneous
  Country: US (occurrence: US)
  Receive Date: 20210902
  Receipt Date: 20231218
  Transmission Date: 20240110
  Serious: Yes (Death, Hospitalization, Other)
  Sender: FDA-Public Use
  Company Number: US-PFIZER INC-202100958405

PATIENT
  Age: 61 Year
  Sex: Female
  Weight: 54.422 kg

DRUGS (1)
  1. IBRANCE [Suspect]
     Active Substance: PALBOCICLIB
     Indication: Neoplasm malignant
     Dosage: 125 MG
     Dates: start: 2021

REACTIONS (5)
  - Cerebrovascular accident [Fatal]
  - Respiratory failure [Fatal]
  - Seizure [Fatal]
  - Confusional state [Unknown]
  - Full blood count abnormal [Unknown]

NARRATIVE: CASE EVENT DATE: 20210101
